FAERS Safety Report 16962443 (Version 2)
Quarter: 2019Q4

REPORT INFORMATION
  Report Type: Report from Study
  Country: JP (occurrence: JP)
  Receive Date: 20191025
  Receipt Date: 20191025
  Transmission Date: 20200122
  Serious: Yes (Other)
  Sender: FDA-Public Use
  Company Number: JP-JNJFOC-20191027217

PATIENT

DRUGS (2)
  1. MONTELUKAST [Suspect]
     Active Substance: MONTELUKAST SODIUM
     Indication: PRODUCT USED FOR UNKNOWN INDICATION
     Route: 065
  2. DARZALEX [Suspect]
     Active Substance: DARATUMUMAB
     Indication: PLASMA CELL MYELOMA
     Dosage: DARATUMUMAB (GENETICAL RECOMBINATION): 100 MG
     Route: 041

REACTIONS (10)
  - Neutropenia [Unknown]
  - Septic shock [Unknown]
  - Anaemia [Unknown]
  - Tumour lysis syndrome [Unknown]
  - Depression [Unknown]
  - Thrombocytopenia [Unknown]
  - Liver injury [Unknown]
  - Infusion related reaction [Unknown]
  - Cytomegalovirus viraemia [Unknown]
  - Febrile neutropenia [Unknown]
